FAERS Safety Report 22345387 (Version 2)
Quarter: 2023Q2

REPORT INFORMATION
  Report Type: Spontaneous
  Country: AR (occurrence: AR)
  Receive Date: 20230519
  Receipt Date: 20230525
  Transmission Date: 20230721
  Serious: Yes (Hospitalization)
  Sender: FDA-Public Use
  Company Number: AR-PFIZER INC-PV202300088280

PATIENT
  Age: 45 Year
  Sex: Female

DRUGS (1)
  1. TALAZOPARIB [Suspect]
     Active Substance: TALAZOPARIB
     Indication: Breast cancer metastatic
     Dosage: 1 MG, DAILY
     Route: 048
     Dates: start: 202303

REACTIONS (1)
  - Anaemia [Unknown]

NARRATIVE: CASE EVENT DATE: 20230101
